FAERS Safety Report 6139340-7 (Version None)
Quarter: 2009Q2

REPORT INFORMATION
  Report Type: 
  Country: None (occurrence: None)
  Receive Date: 20090401
  Receipt Date: 20090324
  Transmission Date: 20091009
  Serious: Yes (Other)
  Sender: FDA-Public Use
  Company Number: PHEH2009US03012

PATIENT
  Sex: Male

DRUGS (3)
  1. EXJADE [Suspect]
     Indication: IRON OVERLOAD
     Dosage: 375 MG, QD
     Route: 048
     Dates: start: 20060901
  2. EXJADE [Suspect]
     Indication: HEREDITARY HAEMOLYTIC ANAEMIA
  3. FOLIC ACID [Concomitant]
     Dosage: UNK
     Dates: start: 20040101

REACTIONS (3)
  - DEAFNESS [None]
  - EAR TUBE INSERTION [None]
  - MIDDLE EAR EFFUSION [None]
